FAERS Safety Report 8234094-2 (Version None)
Quarter: 2012Q1

REPORT INFORMATION
  Report Type: 
  Country: None (occurrence: None)
  Receive Date: 20120326
  Receipt Date: 20120326
  Transmission Date: 20120608
  Serious: No
  Sender: FDA-Public Use
  Company Number: None

PATIENT
  Sex: Male
  Weight: 129.27 kg

DRUGS (2)
  1. LISTERINE TOTAL CARE ZERO [Suspect]
     Indication: DENTAL DISORDER PROPHYLAXIS
     Dosage: 10 ML
     Route: 048
     Dates: start: 20120306, end: 20120320
  2. LISTERINE TOTAL CARE ZERO [Suspect]
     Indication: DRY MOUTH
     Dosage: 10 ML
     Route: 048
     Dates: start: 20120306, end: 20120320

REACTIONS (3)
  - ORAL DISCOMFORT [None]
  - AGEUSIA [None]
  - DYSGEUSIA [None]
